FAERS Safety Report 9036180 (Version 1)
Quarter: 2013Q1

REPORT INFORMATION
  Report Type: Report from Study
  Country: US (occurrence: US)
  Receive Date: 20130129
  Receipt Date: 20130129
  Transmission Date: 20140127
  Serious: No
  Sender: FDA-Public Use
  Company Number: US-ABBOTT-12P-163-0924309-00

PATIENT
  Age: 53 Year
  Sex: Male

DRUGS (7)
  1. HUMIRA 40 MG/0.8 ML PEN [Suspect]
     Indication: PSORIATIC ARTHROPATHY
     Dates: start: 20120405
  2. PREDNISONE [Concomitant]
     Indication: ARTHRITIS
     Dosage: (2.5MG = 1 TABLET) 3 TIMES DAILY
  3. ALLOPURINOL [Concomitant]
     Indication: ARTHRITIS
     Dosage: ONE TABLET DAILY
     Route: 048
  4. CYMBALTA [Concomitant]
     Indication: ARTHRITIS
     Route: 048
  5. MELOXICAM [Concomitant]
     Indication: ARTHRITIS
     Route: 048
  6. MELOXICAM [Concomitant]
     Indication: FIBROMYALGIA
  7. VICODIN [Concomitant]
     Indication: PAIN
     Route: 048

REACTIONS (2)
  - Dizziness [Recovering/Resolving]
  - Nausea [Recovering/Resolving]
